FAERS Safety Report 10809376 (Version 1)
Quarter: 2015Q1

REPORT INFORMATION
  Report Type: Report from Study
  Country: US (occurrence: US)
  Receive Date: 20150217
  Receipt Date: 20150217
  Transmission Date: 20150721
  Serious: No
  Sender: FDA-Public Use
  Company Number: US-ABBVIE-14K-163-1221742-00

PATIENT
  Age: 29 Year
  Sex: Female

DRUGS (1)
  1. HUMIRA [Suspect]
     Active Substance: ADALIMUMAB
     Indication: CROHN^S DISEASE
     Dates: start: 20140119, end: 20140329

REACTIONS (4)
  - Diarrhoea haemorrhagic [Unknown]
  - Pyrexia [Recovered/Resolved]
  - Crohn^s disease [Unknown]
  - Pyrexia [Unknown]

NARRATIVE: CASE EVENT DATE: 2014
